FAERS Safety Report 11475609 (Version 1)
Quarter: 2015Q3

REPORT INFORMATION
  Report Type: Spontaneous
  Country: US (occurrence: US)
  Receive Date: 20150909
  Receipt Date: 20150909
  Transmission Date: 20151125
  Serious: No
  Sender: FDA-Public Use
  Company Number: US-ACTELION PHARMACEUTICALS US, INC.-A-US2015-120627

PATIENT
  Age: 75 Year
  Sex: Female

DRUGS (10)
  1. ASPIRIN. [Concomitant]
     Active Substance: ASPIRIN
  2. CLOBETASOL [Concomitant]
     Active Substance: CLOBETASOL
  3. VALCHLOR [Suspect]
     Active Substance: MECHLORETHAMINE
     Indication: MYCOSIS FUNGOIDES
     Dosage: UNK, APPLY DAILY TO AFFECTED AREAS
     Route: 061
     Dates: start: 201504
  4. SYNTHROID [Concomitant]
     Active Substance: LEVOTHYROXINE SODIUM
  5. MULTIVITAMINS [Concomitant]
     Active Substance: VITAMINS
  6. INTRON [Concomitant]
     Active Substance: INTERFERON ALFA-2B
  7. HALOBETASOL PROP [Concomitant]
  8. CALCIUM + VITAMIN D [Concomitant]
     Active Substance: CALCIUM\VITAMIN D
  9. FERROUS SULFATE [Concomitant]
     Active Substance: FERROUS SULFATE\FERROUS SULFATE, DRIED
  10. LEXAPRO [Concomitant]
     Active Substance: ESCITALOPRAM OXALATE

REACTIONS (3)
  - Skin reaction [Unknown]
  - Dermatitis contact [Recovered/Resolved]
  - Skin irritation [Recovering/Resolving]
